FAERS Safety Report 19127435 (Version 1)
Quarter: 2021Q2

REPORT INFORMATION
  Report Type: Spontaneous
  Country: US (occurrence: US)
  Receive Date: 20210413
  Receipt Date: 20210413
  Transmission Date: 20210717
  Serious: No
  Sender: FDA-Public Use
  Company Number: US-ALLERGAN-2020763US

PATIENT
  Sex: Female

DRUGS (1)
  1. LATISSE [Suspect]
     Active Substance: BIMATOPROST
     Indication: GROWTH OF EYELASHES
     Dosage: 1 GTT
     Route: 061

REACTIONS (5)
  - Hypersensitivity [Recovered/Resolved]
  - Blepharal pigmentation [Recovered/Resolved]
  - Eye irritation [Recovered/Resolved]
  - Eye pruritus [Recovered/Resolved]
  - Skin discolouration [Recovered/Resolved]
